FAERS Safety Report 4328348-X (Version None)
Quarter: 2004Q1

REPORT INFORMATION
  Report Type: 
  Country: None (occurrence: None)
  Receive Date: 20040325
  Receipt Date: 20030616
  Transmission Date: 20041129
  Serious: Yes (Other)
  Sender: FDA-Public Use
  Company Number: HQWYE652617JUN03

PATIENT

DRUGS (1)
  1. ETODOLAC [Suspect]

REACTIONS (1)
  - PANCREATITIS [None]
